FAERS Safety Report 10088910 (Version 1)
Quarter: 2014Q2

REPORT INFORMATION
  Report Type: Spontaneous
  Country: JP (occurrence: JP)
  Receive Date: 20140421
  Receipt Date: 20140421
  Transmission Date: 20141212
  Serious: Yes (Life-Threatening)
  Sender: FDA-Public Use
  Company Number: JP-JNJFOC-20140410150

PATIENT
  Age: 77 Year
  Sex: Male
  Weight: 66 kg

DRUGS (7)
  1. XARELTO [Suspect]
     Indication: CEREBROVASCULAR ACCIDENT PROPHYLAXIS
     Route: 048
     Dates: start: 20140122, end: 20140305
  2. BAYCARON [Concomitant]
     Route: 048
  3. PLETAAL [Concomitant]
     Route: 048
  4. PRAVASTATIN SODIUM [Concomitant]
     Route: 048
  5. ALLOZYM [Concomitant]
     Route: 048
  6. AMLODIPINE [Concomitant]
     Route: 048
  7. LANIRAPID [Concomitant]
     Route: 048

REACTIONS (1)
  - Interstitial lung disease [Recovering/Resolving]
